FAERS Safety Report 11214523 (Version 2)
Quarter: 2015Q3

REPORT INFORMATION
  Report Type: Spontaneous
  Country: US (occurrence: None)
  Receive Date: 20150622
  Receipt Date: 20150708
  Transmission Date: 20151125
  Serious: No
  Sender: FDA-Public Use
  Company Number: 2015-00053

PATIENT
  Age: 31 Year
  Sex: Male
  Weight: 122.47 kg

DRUGS (2)
  1. ZICAM NOS [Suspect]
     Active Substance: ACETAMINOPHEN\CHLORPHENIRAMINE MALEATE\DEXTROMETHORPHAN HYDROBROMIDE\PHENYLEPHRINE HYDROCHLORIDE OR ACETAMINOPHEN\DEXTROMETHORPHAN HYDROBROMIDE\DOXYLAMINE SUCCINATE\PHENYLEPHRINE HYDROCHLORIDE
     Indication: NASOPHARYNGITIS
     Dosage: 1 SPRAY EACH NOSTRIL EVERY 4 HRS.
     Dates: start: 20150527, end: 20150531
  2. MEN^S MULTIVITAMIN [Concomitant]

REACTIONS (4)
  - Anosmia [None]
  - No therapeutic response [None]
  - Ageusia [None]
  - Sinusitis [None]

NARRATIVE: CASE EVENT DATE: 201506
